FAERS Safety Report 4831830-X (Version None)
Quarter: 2005Q4

REPORT INFORMATION
  Report Type: 
  Country: None (occurrence: None)
  Receive Date: 20051118
  Receipt Date: 20050409
  Transmission Date: 20060501
  Serious: Yes (Death, Other)
  Sender: FDA-Public Use
  Company Number: DE-BRISTOL-MYERS SQUIBB COMPANY-13144027

PATIENT
  Sex: Male
  Weight: 88 kg

DRUGS (6)
  1. REYATAZ [Suspect]
  2. VIDEX [Suspect]
  3. MALIASIN [Concomitant]
     Dates: end: 20010101
  4. ETHAMBUTOL [Concomitant]
     Dates: start: 19980101
  5. CLARITHROMYCIN [Concomitant]
  6. RIFABUTIN [Concomitant]

REACTIONS (1)
  - RECTAL CANCER [None]
